FAERS Safety Report 5541447-X (Version None)
Quarter: 2007Q4

REPORT INFORMATION
  Report Type: 
  Country: None (occurrence: None)
  Receive Date: 20071210
  Receipt Date: 20071129
  Transmission Date: 20080405
  Serious: Yes (Hospitalization)
  Sender: FDA-Public Use
  Company Number: NL-JNJFOC-20071200267

PATIENT
  Sex: Male

DRUGS (2)
  1. TRISPORAL [Suspect]
     Indication: FUNGAL INFECTION
  2. KETOCONAZOLE [Concomitant]

REACTIONS (1)
  - PANCREATITIS RELAPSING [None]
